FAERS Safety Report 8492845-6 (Version None)
Quarter: 2012Q3

REPORT INFORMATION
  Report Type: 
  Country: None (occurrence: None)
  Receive Date: 20120706
  Receipt Date: 20120628
  Transmission Date: 20120928
  Serious: Yes (Other)
  Sender: FDA-Public Use
  Company Number: US-BRISTOL-MYERS SQUIBB COMPANY-16696932

PATIENT
  Age: 60 Year
  Sex: Female
  Weight: 104 kg

DRUGS (2)
  1. ORENCIA [Suspect]
     Indication: RHEUMATOID ARTHRITIS
     Dosage: LAST INFUSION ON 06-JUN-2012,SHE WILL RESUME HER ORENCIA IN SQ FROM OCT2012.
     Route: 042
  2. PREDNISONE [Concomitant]

REACTIONS (2)
  - HEADACHE [None]
  - INTERVERTEBRAL DISC DEGENERATION [None]
